FAERS Safety Report 19731591 (Version 1)
Quarter: 2021Q3

REPORT INFORMATION
  Report Type: Spontaneous
  Country: US (occurrence: US)
  Receive Date: 20210819
  Receipt Date: 20210819
  Transmission Date: 20211014
  Serious: No
  Sender: FDA-Public Use
  Company Number: None

PATIENT
  Age: 80 Year
  Sex: Female

DRUGS (19)
  1. ASPIRIN EC [Concomitant]
     Active Substance: ASPIRIN
  2. DAILYVITE [Concomitant]
  3. MAGNESIUM?OX [Concomitant]
  4. SENNA EXT [Concomitant]
  5. TRAMADOL HCL [Concomitant]
     Active Substance: TRAMADOL HYDROCHLORIDE
  6. CALTRATE [Concomitant]
     Active Substance: CALCIUM CARBONATE
  7. DOCUSATE SOD [Concomitant]
  8. FLUTICASONE SPR [Concomitant]
  9. FUROSEMIDE. [Concomitant]
     Active Substance: FUROSEMIDE
  10. COENZYME Q10 [Concomitant]
     Active Substance: DIETARY SUPPLEMENT\UBIDECARENONE
  11. CYANOCOBALAM [Concomitant]
     Active Substance: CYANOCOBALAMIN
  12. FOLIC ACID. [Concomitant]
     Active Substance: FOLIC ACID
  13. XOPENEX HFA [Concomitant]
     Active Substance: LEVALBUTEROL TARTRATE
  14. AMLODIPINE [Concomitant]
     Active Substance: AMLODIPINE BESYLATE
  15. KLOR?CON EXTENDED?RELEASE [Concomitant]
     Active Substance: POTASSIUM CHLORIDE
  16. REPATHA [Suspect]
     Active Substance: EVOLOCUMAB
     Indication: ARTERIOSCLEROSIS
     Dosage: 1 ML (140MG) Q14D SQ
     Route: 058
     Dates: start: 20210608
  17. TRINTELLIX [Concomitant]
     Active Substance: VORTIOXETINE HYDROBROMIDE
  18. DIAZEPAM. [Concomitant]
     Active Substance: DIAZEPAM
  19. METOPROL TAR [Concomitant]

REACTIONS (1)
  - Transplant failure [None]

NARRATIVE: CASE EVENT DATE: 20210811
